FAERS Safety Report 16762109 (Version 1)
Quarter: 2019Q3

REPORT INFORMATION
  Report Type: Spontaneous
  Country: DE (occurrence: DE)
  Receive Date: 20190830
  Receipt Date: 20190830
  Transmission Date: 20191005
  Serious: Yes (Hospitalization)
  Sender: FDA-Public Use
  Company Number: PHHY2019DE198897

PATIENT
  Age: 53 Year
  Sex: Female
  Weight: 56 kg

DRUGS (7)
  1. ZYLORIC [Concomitant]
     Active Substance: ALLOPURINOL
     Indication: PREMEDICATION
     Dosage: UNK UNK, QW
     Route: 065
     Dates: start: 20141022, end: 20141031
  2. CARBOPLATIN. [Suspect]
     Active Substance: CARBOPLATIN
     Indication: HEAD AND NECK CANCER METASTATIC
     Dosage: UNK UNK, Q3W (584 AUC)
     Route: 042
     Dates: start: 20141022, end: 20150116
  3. RANITIDINE. [Concomitant]
     Active Substance: RANITIDINE
     Indication: PREMEDICATION
     Dosage: UNK UNK, QW
     Route: 065
     Dates: start: 20141022, end: 20141031
  4. ZOFRAN [Concomitant]
     Active Substance: ONDANSETRON HYDROCHLORIDE
     Indication: PREMEDICATION
     Dosage: UNK UNK, QW
     Route: 065
     Dates: start: 20141022, end: 20141031
  5. ERBITUX [Suspect]
     Active Substance: CETUXIMAB
     Dosage: 400 MG/M2, UNK
     Route: 042
  6. ERBITUX [Suspect]
     Active Substance: CETUXIMAB
     Indication: HEAD AND NECK CANCER METASTATIC
     Dosage: 250 MG/M2, UNK
     Route: 042
  7. 5-FLUOROURACIL [Suspect]
     Active Substance: FLUOROURACIL
     Indication: HEAD AND NECK CANCER METASTATIC
     Dosage: 1000 MG/M2, Q3W
     Route: 042
     Dates: start: 20141022, end: 20150116

REACTIONS (4)
  - General physical health deterioration [Recovered/Resolved]
  - Vomiting [Recovered/Resolved]
  - Diarrhoea [Recovered/Resolved]
  - Leukopenia [Unknown]

NARRATIVE: CASE EVENT DATE: 20141217
